FAERS Safety Report 7544508-9 (Version None)
Quarter: 2011Q2

REPORT INFORMATION
  Report Type: 
  Country: None (occurrence: None)
  Receive Date: 20110613
  Receipt Date: 20110607
  Transmission Date: 20111010
  Serious: Yes (Hospitalization)
  Sender: FDA-Public Use
  Company Number: IT-MERCK-1106ITA00011

PATIENT
  Age: 80 Year
  Sex: Female

DRUGS (16)
  1. LEVOFLOXACIN [Suspect]
     Indication: BRONCHOPNEUMONIA
     Route: 042
     Dates: start: 20100428, end: 20100515
  2. FUROSEMIDE SODIUM [Concomitant]
     Route: 048
  3. CLONIDINE HYDROCHLORIDE [Concomitant]
     Route: 065
  4. URSODIOL [Concomitant]
     Route: 048
  5. EPOETIN BETA [Concomitant]
     Route: 058
  6. ESOMEPRAZOLE MAGNESIUM [Concomitant]
     Route: 048
  7. FOLIC ACID [Concomitant]
     Route: 065
  8. LORAZEPAM [Concomitant]
     Route: 048
  9. PRIMAXIN [Suspect]
     Indication: BRONCHOPNEUMONIA
     Route: 042
     Dates: start: 20100428, end: 20100516
  10. OXITROPIUM BROMIDE [Concomitant]
     Route: 065
  11. LEVOTHYROXINE SODIUM [Concomitant]
     Route: 065
  12. PREDNISONE [Concomitant]
     Route: 065
  13. TRAZODONE HYDROCHLORIDE [Concomitant]
     Route: 048
  14. METOLAZONE [Concomitant]
     Route: 065
  15. WARFARIN SODIUM [Concomitant]
     Route: 065
  16. ESCITALOPRAM OXALATE [Concomitant]
     Route: 048

REACTIONS (3)
  - ANURIA [None]
  - HAEMODIALYSIS [None]
  - RENAL FAILURE CHRONIC [None]
